FAERS Safety Report 16202473 (Version 2)
Quarter: 2019Q2

REPORT INFORMATION
  Report Type: Spontaneous
  Country: US (occurrence: US)
  Receive Date: 20190416
  Receipt Date: 20190528
  Transmission Date: 20190711
  Serious: Yes (Other)
  Sender: FDA-Public Use
  Company Number: US-PFIZER INC-2019157636

PATIENT
  Age: 58 Year
  Sex: Female
  Weight: 73 kg

DRUGS (8)
  1. ALBUTEROL [SALBUTAMOL] [Concomitant]
     Active Substance: ALBUTEROL
     Indication: HYPERSENSITIVITY
     Dosage: 8 MG, UNK (8 MG, TABLET, ORALLY, TWICE)
     Route: 048
  2. LODINE [Concomitant]
     Active Substance: ETODOLAC
     Dosage: UNK UNK, ALTERNATE DAY(400 AT ONE DAY AND 360 THE NEXT, ALTERNATIVE)
  3. PREMARIN [Suspect]
     Active Substance: ESTROGENS, CONJUGATED
     Dosage: UNK (0.625, PREMARIN CREAM)
     Route: 067
  4. SINGULAIR [Concomitant]
     Active Substance: MONTELUKAST SODIUM
     Indication: HYPERSENSITIVITY
     Dosage: 1 DF, 1X/DAY
     Route: 048
  5. THYROXINE [Concomitant]
     Active Substance: LEVOTHYROXINE
     Dosage: UNK
  6. PREMARIN [Suspect]
     Active Substance: ESTROGENS, CONJUGATED
     Indication: VAGINAL DISORDER
     Dosage: UNK, 1X/DAY
  7. LYRICA [Concomitant]
     Active Substance: PREGABALIN
     Indication: ARTHRITIS
     Dosage: 75 MG, 2X/DAY
     Route: 048
  8. PREMARIN [Suspect]
     Active Substance: ESTROGENS, CONJUGATED
     Dosage: UNK (0.625, PREMARIN CREAM)
     Route: 067
     Dates: start: 1992, end: 2009

REACTIONS (5)
  - Vulvovaginal pain [Unknown]
  - Weight decreased [Unknown]
  - Malaise [Unknown]
  - Blister [Recovered/Resolved with Sequelae]
  - Dysuria [Unknown]

NARRATIVE: CASE EVENT DATE: 2008
